FAERS Safety Report 7268427-0 (Version None)
Quarter: 2011Q1

REPORT INFORMATION
  Report Type: 
  Country: None (occurrence: None)
  Receive Date: 20110201
  Receipt Date: 20110126
  Transmission Date: 20110831
  Serious: Yes (Death, Hospitalization, Other)
  Sender: FDA-Public Use
  Company Number: FR-PFIZER INC-FR-WYE-G06370610

PATIENT
  Age: 70 Year
  Sex: Female
  Weight: 55.1 kg

DRUGS (5)
  1. DAUNORUBICIN [Suspect]
     Indication: ACUTE MYELOID LEUKAEMIA
     Dosage: 100 MG, TOTAL DAILY
     Route: 042
     Dates: start: 20100526, end: 20100528
  2. VFEND [Concomitant]
     Dosage: 400 MG, UNK
     Route: 048
     Dates: start: 20100702
  3. CYTARABINE [Suspect]
     Indication: ACUTE MYELOID LEUKAEMIA
     Dosage: 330 MG, TOTAL DAILY
     Route: 042
     Dates: start: 20100526, end: 20100601
  4. GEMTUZUMAB OZOGAMICIN [Suspect]
     Indication: ACUTE MYELOID LEUKAEMIA
     Dosage: 5 MG, TOTAL DAILY
     Route: 042
     Dates: start: 20100526, end: 20100601
  5. TAZOCILLINE [Concomitant]
     Dosage: 4 G, PER DAY
     Route: 042
     Dates: start: 20100702, end: 20100705

REACTIONS (3)
  - SUBDURAL HAEMATOMA [None]
  - BONE MARROW FAILURE [None]
  - THROMBOCYTOPENIA [None]
